FAERS Safety Report 7684778-X (Version None)
Quarter: 2011Q3

REPORT INFORMATION
  Report Type: 
  Country: None (occurrence: None)
  Receive Date: 20110816
  Receipt Date: 20110719
  Transmission Date: 20111222
  Serious: No
  Sender: FDA-Public Use
  Company Number: US-BAYER-2011-044680

PATIENT
  Age: 64 Year
  Sex: Male
  Weight: 125 kg

DRUGS (4)
  1. NAPROXEN (ALEVE) [Suspect]
     Dosage: UNK UNK, BID
     Route: 048
  2. ANTIHYPERTENSIVES [Concomitant]
     Dosage: UNK
     Route: 048
  3. ALEVE (CAPLET) [Suspect]
     Indication: GOUT
     Dosage: COUNT SIZE 200S
     Route: 048
  4. ANTI-DIABETICS [Concomitant]
     Dosage: UNK

REACTIONS (1)
  - GOUT [None]
